FAERS Safety Report 9073103 (Version 3)
Quarter: 2014Q1

REPORT INFORMATION
  Report Type: Spontaneous
  Country: FR (occurrence: FR)
  Receive Date: 20130129
  Receipt Date: 20140130
  Transmission Date: 20141002
  Serious: Yes (Other)
  Sender: FDA-Public Use
  Company Number: FR-TEVA-382272ISR

PATIENT
  Sex: Female

DRUGS (13)
  1. COPAXONE [Suspect]
     Dosage: AUTOJECT
     Dates: start: 200706
  2. RIVOTRIL [Suspect]
     Indication: PAIN
     Dosage: 30 GTT DAILY;
     Route: 048
     Dates: start: 2006
  3. RIVOTRIL [Suspect]
     Dosage: 15 GTT DAILY;
     Route: 048
  4. RIVOTRIL [Suspect]
     Dosage: 10 GTT DAILY;
     Route: 048
  5. LAROXYL [Concomitant]
     Indication: SLEEP DISORDER
     Dosage: 15 GTT DAILY;
  6. TOPALGIC [Concomitant]
     Indication: PAIN
     Dosage: 2 TO 4 DOSAGE FORMS DAILY
  7. XANAX [Concomitant]
     Indication: SLEEP DISORDER
     Dosage: 2 DOSAGE FORMS DAILY;
  8. MOTILIUM [Concomitant]
     Indication: NAUSEA
  9. SPASFON [Concomitant]
  10. DOLIPRANE [Concomitant]
  11. MOVICOL [Concomitant]
  12. ZYMAD [Concomitant]
  13. VERSATIS [Concomitant]

REACTIONS (33)
  - Dental necrosis [Recovered/Resolved]
  - Abasia [Recovered/Resolved]
  - Apnoea [Not Recovered/Not Resolved]
  - Urinary tract infection [Recovered/Resolved]
  - Genital erosion [Not Recovered/Not Resolved]
  - Memory impairment [Not Recovered/Not Resolved]
  - Paraesthesia [Recovered/Resolved]
  - Dyspnoea [Not Recovered/Not Resolved]
  - Sinusitis [Recovered/Resolved]
  - Bronchitis [Recovered/Resolved]
  - Nausea [Unknown]
  - Nervousness [Not Recovered/Not Resolved]
  - Anxiety [Not Recovered/Not Resolved]
  - Rash [Recovered/Resolved]
  - Malaise [Recovered/Resolved]
  - Fatigue [Unknown]
  - Injection site erythema [Not Recovered/Not Resolved]
  - Injection site pruritus [Not Recovered/Not Resolved]
  - Injection site atrophy [Unknown]
  - Injection site bruising [Unknown]
  - Hepatic pain [Unknown]
  - Tachycardia [Not Recovered/Not Resolved]
  - Hyperventilation [Not Recovered/Not Resolved]
  - Sense of oppression [Not Recovered/Not Resolved]
  - Rectal tenesmus [Unknown]
  - Rectal prolapse [Not Recovered/Not Resolved]
  - Vulvovaginal candidiasis [Not Recovered/Not Resolved]
  - Injection site pain [Not Recovered/Not Resolved]
  - Injection site induration [Not Recovered/Not Resolved]
  - Fatigue [Not Recovered/Not Resolved]
  - Back pain [Not Recovered/Not Resolved]
  - Abdominal pain [Not Recovered/Not Resolved]
  - Headache [Not Recovered/Not Resolved]
